FAERS Safety Report 25069982 (Version 2)
Quarter: 2025Q2

REPORT INFORMATION
  Report Type: Spontaneous
  Country: PL (occurrence: PL)
  Receive Date: 20250312
  Receipt Date: 20250527
  Transmission Date: 20250716
  Serious: Yes (Other)
  Sender: MYLAN
  Company Number: PL-LESVI-2025000266

PATIENT
  Age: 31 Year
  Sex: Female

DRUGS (56)
  1. ARIPIPRAZOLE [Suspect]
     Active Substance: ARIPIPRAZOLE
     Indication: Schizophrenia
  2. ARIPIPRAZOLE [Suspect]
     Active Substance: ARIPIPRAZOLE
  3. ARIPIPRAZOLE [Suspect]
     Active Substance: ARIPIPRAZOLE
     Route: 065
  4. ARIPIPRAZOLE [Suspect]
     Active Substance: ARIPIPRAZOLE
     Route: 065
  5. ARIPIPRAZOLE [Suspect]
     Active Substance: ARIPIPRAZOLE
     Dosage: 30 MILLIGRAM, QD
  6. ARIPIPRAZOLE [Suspect]
     Active Substance: ARIPIPRAZOLE
     Dosage: 30 MILLIGRAM, QD
  7. ARIPIPRAZOLE [Suspect]
     Active Substance: ARIPIPRAZOLE
     Dosage: 30 MILLIGRAM, QD
     Route: 065
  8. ARIPIPRAZOLE [Suspect]
     Active Substance: ARIPIPRAZOLE
     Dosage: 30 MILLIGRAM, QD
     Route: 065
  9. ARIPIPRAZOLE [Suspect]
     Active Substance: ARIPIPRAZOLE
     Dosage: 15 MILLIGRAM, QD
  10. ARIPIPRAZOLE [Suspect]
     Active Substance: ARIPIPRAZOLE
     Dosage: 15 MILLIGRAM, QD
     Route: 065
  11. ARIPIPRAZOLE [Suspect]
     Active Substance: ARIPIPRAZOLE
     Dosage: 15 MILLIGRAM, QD
  12. ARIPIPRAZOLE [Suspect]
     Active Substance: ARIPIPRAZOLE
     Dosage: 15 MILLIGRAM, QD
     Route: 065
  13. LAMOTRIGINE [Suspect]
     Active Substance: LAMOTRIGINE
     Indication: Schizophrenia
     Dosage: 100 MILLIGRAM, QD
  14. LAMOTRIGINE [Suspect]
     Active Substance: LAMOTRIGINE
     Dosage: 100 MILLIGRAM, QD
     Route: 065
  15. LAMOTRIGINE [Suspect]
     Active Substance: LAMOTRIGINE
     Dosage: 100 MILLIGRAM, QD
     Route: 065
  16. LAMOTRIGINE [Suspect]
     Active Substance: LAMOTRIGINE
     Dosage: 100 MILLIGRAM, QD
  17. ARIPIPRAZOLE [Suspect]
     Active Substance: ARIPIPRAZOLE
     Indication: Schizophrenia
     Route: 065
  18. ARIPIPRAZOLE [Suspect]
     Active Substance: ARIPIPRAZOLE
  19. ARIPIPRAZOLE [Suspect]
     Active Substance: ARIPIPRAZOLE
  20. ARIPIPRAZOLE [Suspect]
     Active Substance: ARIPIPRAZOLE
     Route: 065
  21. ARIPIPRAZOLE [Suspect]
     Active Substance: ARIPIPRAZOLE
     Route: 065
  22. ARIPIPRAZOLE [Suspect]
     Active Substance: ARIPIPRAZOLE
  23. ARIPIPRAZOLE [Suspect]
     Active Substance: ARIPIPRAZOLE
  24. ARIPIPRAZOLE [Suspect]
     Active Substance: ARIPIPRAZOLE
     Route: 065
  25. RISPERIDONE [Suspect]
     Active Substance: RISPERIDONE
     Indication: Schizophrenia
     Dosage: 6 MILLIGRAM, QD
     Route: 065
  26. RISPERIDONE [Suspect]
     Active Substance: RISPERIDONE
     Dosage: 6 MILLIGRAM, QD
  27. RISPERIDONE [Suspect]
     Active Substance: RISPERIDONE
     Dosage: 6 MILLIGRAM, QD
  28. RISPERIDONE [Suspect]
     Active Substance: RISPERIDONE
     Dosage: 6 MILLIGRAM, QD
     Route: 065
  29. RISPERIDONE [Suspect]
     Active Substance: RISPERIDONE
     Route: 065
  30. RISPERIDONE [Suspect]
     Active Substance: RISPERIDONE
  31. RISPERIDONE [Suspect]
     Active Substance: RISPERIDONE
  32. RISPERIDONE [Suspect]
     Active Substance: RISPERIDONE
     Route: 065
  33. LEVOMEPROMAZINE [Suspect]
     Active Substance: LEVOMEPROMAZINE
     Indication: Schizophrenia
     Dosage: 50 MILLIGRAM, QD
  34. LEVOMEPROMAZINE [Suspect]
     Active Substance: LEVOMEPROMAZINE
     Dosage: 50 MILLIGRAM, QD
     Route: 065
  35. LEVOMEPROMAZINE [Suspect]
     Active Substance: LEVOMEPROMAZINE
     Dosage: 50 MILLIGRAM, QD
     Route: 065
  36. LEVOMEPROMAZINE [Suspect]
     Active Substance: LEVOMEPROMAZINE
     Dosage: 50 MILLIGRAM, QD
  37. CARIPRAZINE [Suspect]
     Active Substance: CARIPRAZINE
     Indication: Schizophrenia
     Dosage: 1.5 MILLIGRAM, QD
  38. CARIPRAZINE [Suspect]
     Active Substance: CARIPRAZINE
     Dosage: 1.5 MILLIGRAM, QD
  39. CARIPRAZINE [Suspect]
     Active Substance: CARIPRAZINE
     Dosage: 1.5 MILLIGRAM, QD
     Route: 065
  40. CARIPRAZINE [Suspect]
     Active Substance: CARIPRAZINE
     Dosage: 1.5 MILLIGRAM, QD
     Route: 065
  41. CARIPRAZINE [Suspect]
     Active Substance: CARIPRAZINE
     Dosage: 3 MILLIGRAM, QD
  42. CARIPRAZINE [Suspect]
     Active Substance: CARIPRAZINE
     Dosage: 3 MILLIGRAM, QD
  43. CARIPRAZINE [Suspect]
     Active Substance: CARIPRAZINE
     Dosage: 3 MILLIGRAM, QD
     Route: 065
  44. CARIPRAZINE [Suspect]
     Active Substance: CARIPRAZINE
     Dosage: 3 MILLIGRAM, QD
     Route: 065
  45. OLANZAPINE [Suspect]
     Active Substance: OLANZAPINE
     Dosage: 20 MILLIGRAM, QD
  46. OLANZAPINE [Suspect]
     Active Substance: OLANZAPINE
     Dosage: 20 MILLIGRAM, QD
  47. OLANZAPINE [Suspect]
     Active Substance: OLANZAPINE
     Dosage: 20 MILLIGRAM, QD
     Route: 065
  48. OLANZAPINE [Suspect]
     Active Substance: OLANZAPINE
     Dosage: 20 MILLIGRAM, QD
     Route: 065
  49. OLANZAPINE [Suspect]
     Active Substance: OLANZAPINE
     Dosage: 10 MILLIGRAM, QD
  50. OLANZAPINE [Suspect]
     Active Substance: OLANZAPINE
     Dosage: 10 MILLIGRAM, QD
  51. OLANZAPINE [Suspect]
     Active Substance: OLANZAPINE
     Dosage: 10 MILLIGRAM, QD
     Route: 065
  52. OLANZAPINE [Suspect]
     Active Substance: OLANZAPINE
     Dosage: 10 MILLIGRAM, QD
     Route: 065
  53. AMISULPRIDE [Suspect]
     Active Substance: AMISULPRIDE
     Indication: Product used for unknown indication
  54. AMISULPRIDE [Suspect]
     Active Substance: AMISULPRIDE
     Route: 065
  55. AMISULPRIDE [Suspect]
     Active Substance: AMISULPRIDE
     Route: 065
  56. AMISULPRIDE [Suspect]
     Active Substance: AMISULPRIDE

REACTIONS (9)
  - Hallucination [Recovered/Resolved]
  - Apathy [Recovered/Resolved]
  - Lethargy [Recovered/Resolved]
  - Asthenia [Recovered/Resolved]
  - Somnolence [Recovered/Resolved]
  - Weight increased [Recovered/Resolved]
  - Treatment noncompliance [Unknown]
  - Drug ineffective [Unknown]
  - Off label use [Unknown]
